FAERS Safety Report 7646264-2 (Version None)
Quarter: 2011Q3

REPORT INFORMATION
  Report Type: 
  Country: None (occurrence: None)
  Receive Date: 20110801
  Receipt Date: 20110719
  Transmission Date: 20111222
  Serious: No
  Sender: FDA-Public Use
  Company Number: US-BIOGENIDEC-2011BI027966

PATIENT
  Sex: Female

DRUGS (1)
  1. TYSABRI [Suspect]
     Indication: MULTIPLE SCLEROSIS
     Route: 042
     Dates: start: 20090506, end: 20091111

REACTIONS (5)
  - DIZZINESS [None]
  - SENSORY DISTURBANCE [None]
  - HYPERSOMNIA [None]
  - DEPRESSED MOOD [None]
  - WEIGHT DECREASED [None]
